FAERS Safety Report 5236310-8 (Version None)
Quarter: 2007Q1

REPORT INFORMATION
  Report Type: 
  Country: None (occurrence: None)
  Receive Date: 20061208
  Receipt Date: 20050208
  Transmission Date: 20070707
  Serious: Yes (Other)
  Sender: FDA-Public Use
  Company Number: 2005UW02208

PATIENT
  Age: 58 Year
  Sex: Female
  Weight: 74.842 kg

DRUGS (4)
  1. CRESTOR [Suspect]
     Indication: BLOOD CHOLESTEROL INCREASED
     Dosage: 10 MG PO
     Route: 048
     Dates: start: 20040101
  2. MOBIC [Suspect]
  3. VIOXX [Suspect]
  4. CELEBREX [Concomitant]

REACTIONS (2)
  - DRUG INTERACTION [None]
  - MOUTH ULCERATION [None]
